FAERS Safety Report 7952855-1 (Version None)
Quarter: 2011Q4

REPORT INFORMATION
  Report Type: 
  Country: None (occurrence: None)
  Receive Date: 20111129
  Receipt Date: 20111114
  Transmission Date: 20120403
  Serious: Yes (Hospitalization)
  Sender: FDA-Public Use
  Company Number: 2011SP031793

PATIENT
  Age: 54 Year
  Sex: Female
  Weight: 61.3 kg

DRUGS (3)
  1. REMERON [Suspect]
     Indication: DEPRESSION
     Dosage: 15 MG;TID;PO
     Route: 048
     Dates: start: 20100204, end: 20110220
  2. DESYREL [Suspect]
     Indication: DEPRESSION
     Dosage: 50 MG;PO
     Route: 048
     Dates: start: 20090311, end: 20110125
  3. DESYREL [Suspect]
     Indication: SLEEP DISORDER
     Dosage: 50 MG;PO
     Route: 048
     Dates: start: 20090311, end: 20110125

REACTIONS (3)
  - HEADACHE [None]
  - CEREBRAL VASOCONSTRICTION [None]
  - HEMIPARESIS [None]
